FAERS Safety Report 6956508-8 (Version None)
Quarter: 2010Q3

REPORT INFORMATION
  Report Type: 
  Country: None (occurrence: None)
  Receive Date: 20100830
  Receipt Date: 20100820
  Transmission Date: 20110219
  Serious: Yes (Death, Other)
  Sender: FDA-Public Use
  Company Number: US-AMGEN-QUU432961

PATIENT
  Sex: Male

DRUGS (1)
  1. NPLATE [Suspect]
     Indication: IDIOPATHIC THROMBOCYTOPENIC PURPURA
     Dates: start: 20090710, end: 20090806

REACTIONS (4)
  - GENERAL PHYSICAL HEALTH DETERIORATION [None]
  - NEPHROPATHY [None]
  - REFUSAL OF TREATMENT BY PATIENT [None]
  - VITAMIN B12 DEFICIENCY [None]
